FAERS Safety Report 6428922-0 (Version None)
Quarter: 2009Q4

REPORT INFORMATION
  Report Type: 
  Country: None (occurrence: None)
  Receive Date: 20091104
  Receipt Date: 20091104
  Transmission Date: 20100525
  Serious: Yes (Hospitalization)
  Sender: FDA-Public Use
  Company Number: None

PATIENT
  Sex: Female
  Weight: 54.54 kg

DRUGS (1)
  1. MEMANTINE HCL [Suspect]
     Dosage: 100 MG

REACTIONS (7)
  - CHILLS [None]
  - COUGH [None]
  - HEADACHE [None]
  - LUNG INFILTRATION [None]
  - MYALGIA [None]
  - OROPHARYNGEAL PAIN [None]
  - PYREXIA [None]
